FAERS Safety Report 4970827-6 (Version None)
Quarter: 2006Q2

REPORT INFORMATION
  Report Type: 
  Country: None (occurrence: None)
  Receive Date: 20060406
  Receipt Date: 20060323
  Transmission Date: 20061013
  Serious: Yes (Hospitalization, Other)
  Sender: FDA-Public Use
  Company Number: US200603005975

PATIENT
  Age: 77 Year
  Sex: Female

DRUGS (3)
  1. ZYPREXA [Suspect]
     Indication: SCHIZOPHRENIA
     Dosage: 7.5 MG
     Dates: start: 20040101
  2. ZYPREXA [Suspect]
     Indication: SCHIZOPHRENIA
     Dosage: 7.5 MG
     Dates: start: 20060321
  3. XANAX [Concomitant]

REACTIONS (9)
  - ANOREXIA [None]
  - HIATUS HERNIA [None]
  - HOSTILITY [None]
  - MEMORY IMPAIRMENT [None]
  - MOOD SWINGS [None]
  - OEDEMA PERIPHERAL [None]
  - OESOPHAGEAL ULCER [None]
  - PAIN IN EXTREMITY [None]
  - VOMITING [None]
